FAERS Safety Report 17157722 (Version 1)
Quarter: 2019Q4

REPORT INFORMATION
  Report Type: Spontaneous
  Country: CN (occurrence: CN)
  Receive Date: 20191216
  Receipt Date: 20191216
  Transmission Date: 20200122
  Serious: Yes (Hospitalization)
  Sender: FDA-Public Use
  Company Number: CN-CELGENEUS-CHN-20191201434

PATIENT
  Age: 62 Year
  Sex: Male
  Weight: 62.3 kg

DRUGS (15)
  1. PEGYLATED RECOMBINANT HUMAN GRANULOCYTE STIMULATING FACTOR INJECTION [Concomitant]
     Indication: WHITE BLOOD CELL COUNT DECREASED
     Route: 065
     Dates: start: 20191122, end: 20191122
  2. ABRAXANE [Suspect]
     Active Substance: PACLITAXEL
     Indication: NON-SMALL CELL LUNG CANCER METASTATIC
     Dosage: 120 MILLIGRAM
     Route: 041
     Dates: start: 20191115, end: 20191129
  3. LEUCOGEN [Concomitant]
     Active Substance: LEUCOGEN
     Indication: NEUTROPHIL COUNT DECREASED
  4. METOCLOPRAMIDE. [Concomitant]
     Active Substance: METOCLOPRAMIDE
     Indication: PROPHYLAXIS
     Route: 041
     Dates: start: 20191115, end: 20191115
  5. VITAMIN C [Concomitant]
     Active Substance: ASCORBIC ACID
     Indication: ANAEMIA
     Dosage: 8 MILLIGRAM
     Route: 048
     Dates: start: 20191115
  6. LEVOFLOXACIN. [Concomitant]
     Active Substance: LEVOFLOXACIN
     Indication: PNEUMONIA
     Dosage: .5 GRAM
     Route: 048
     Dates: start: 20191116
  7. SERPLULIMAB. [Concomitant]
     Active Substance: SERPLULIMAB
     Indication: NON-SMALL CELL LUNG CANCER METASTATIC
     Dosage: 270 MILLIGRAM
     Route: 041
     Dates: start: 20191115
  8. NIFSREX [Concomitant]
     Indication: ANAEMIA
     Dosage: 8 MILLIGRAM
     Route: 048
     Dates: start: 20191115
  9. LEUCOGEN [Concomitant]
     Active Substance: LEUCOGEN
     Indication: WHITE BLOOD CELL COUNT DECREASED
     Dosage: 60 MILLIGRAM
     Route: 048
     Dates: start: 20191122
  10. AMBROXOL [Concomitant]
     Active Substance: AMBROXOL
     Indication: PRODUCTIVE COUGH
     Dosage: 90 MILLIGRAM
     Route: 048
     Dates: start: 20191017
  11. AMBROXOL [Concomitant]
     Active Substance: AMBROXOL
     Indication: PRODUCTIVE COUGH
     Dosage: 90 MILLIGRAM
     Route: 048
     Dates: start: 20191017
  12. CARBOPLATIN. [Concomitant]
     Active Substance: CARBOPLATIN
     Indication: NON-SMALL CELL LUNG CANCER METASTATIC
     Dosage: 22.381 MILLIGRAM
     Route: 065
     Dates: start: 20191115
  13. ONDANSETRON [Concomitant]
     Active Substance: ONDANSETRON
     Indication: PROPHYLAXIS
     Dosage: 16 MILLIGRAM
     Route: 048
     Dates: start: 20191116, end: 20191118
  14. RABEPRAZOLE [Concomitant]
     Active Substance: RABEPRAZOLE
     Indication: PROPHYLAXIS
     Dosage: 10 MILLIGRAM
     Route: 048
     Dates: start: 20191116
  15. PEGYLATED RECOMBINANT HUMAN GRANULOCYTE STIMULATING FACTOR INJECTION [Concomitant]
     Indication: NEUTROPHIL COUNT DECREASED

REACTIONS (2)
  - Pericardial effusion [Not Recovered/Not Resolved]
  - Pleural effusion [Not Recovered/Not Resolved]

NARRATIVE: CASE EVENT DATE: 20191129
